FAERS Safety Report 5268983-8 (Version None)
Quarter: 2007Q1

REPORT INFORMATION
  Report Type: 
  Country: None (occurrence: None)
  Receive Date: 20070313
  Receipt Date: 20070228
  Transmission Date: 20070707
  Serious: Yes (Hospitalization)
  Sender: FDA-Public Use
  Company Number: GXKR2007FR02097

PATIENT
  Age: 30 Year
  Sex: Female

DRUGS (3)
  1. VENLAFAXIINE HCL [Suspect]
     Dosage: 5.5 G, ORAL
     Route: 048
  2. ALPRAZOLAM [Suspect]
     Dosage: 500 MG, ORAL
     Route: 048
  3. HYDROXYZINE [Suspect]
     Dosage: 250 MG, ORAL
     Route: 048

REACTIONS (12)
  - ACUTE RESPIRATORY FAILURE [None]
  - CARDIOMYOPATHY ACUTE [None]
  - CONVULSION [None]
  - MULTIPLE DRUG OVERDOSE [None]
  - PULMONARY OEDEMA [None]
  - RHABDOMYOLYSIS [None]
  - SEROTONIN SYNDROME [None]
  - SINUS TACHYCARDIA [None]
  - TACHYCARDIA [None]
  - THERAPEUTIC AGENT TOXICITY [None]
  - VENTRICULAR DYSFUNCTION [None]
  - VENTRICULAR HYPOKINESIA [None]
